FAERS Safety Report 6958731-5 (Version None)
Quarter: 2010Q3

REPORT INFORMATION
  Report Type: 
  Country: None (occurrence: None)
  Receive Date: 20100831
  Receipt Date: 20100818
  Transmission Date: 20110219
  Serious: Yes (Hospitalization)
  Sender: FDA-Public Use
  Company Number: PHHY2010BR55849

PATIENT
  Age: 72 Year
  Sex: Female

DRUGS (3)
  1. FORASEQ [Suspect]
     Indication: ASTHMA
     Dosage: BID
  2. CAPTOPRIL [Concomitant]
     Indication: HYPERTENSION
     Dosage: UNK
     Route: 048
  3. DIURIX [Concomitant]
     Dosage: UNK
     Route: 048

REACTIONS (6)
  - BLINDNESS [None]
  - CEREBRAL ISCHAEMIA [None]
  - DYSPNOEA [None]
  - LUNG INFECTION [None]
  - SPEECH DISORDER [None]
  - VISUAL IMPAIRMENT [None]
